FAERS Safety Report 7754006-5 (Version None)
Quarter: 2011Q3

REPORT INFORMATION
  Report Type: 
  Country: None (occurrence: None)
  Receive Date: 20110915
  Receipt Date: 20110907
  Transmission Date: 20111222
  Serious: Yes (Hospitalization)
  Sender: FDA-Public Use
  Company Number: US-ACTELION-A-US2011-52780

PATIENT

DRUGS (2)
  1. TRACLEER [Suspect]
     Indication: PULMONARY ARTERIAL HYPERTENSION
     Dosage: UNK
     Route: 048
     Dates: start: 20041021
  2. CALCIUM CHANNEL BLOCKERS [Concomitant]

REACTIONS (4)
  - SURGERY [None]
  - RECURRENT CANCER [None]
  - ILEUS [None]
  - GASTROINTESTINAL HAEMORRHAGE [None]
